FAERS Safety Report 6600637-5 (Version None)
Quarter: 2010Q1

REPORT INFORMATION
  Report Type: 
  Country: None (occurrence: None)
  Receive Date: 20100223
  Receipt Date: 20100223
  Transmission Date: 20100710
  Serious: Yes (Other)
  Sender: FDA-Public Use
  Company Number: None

PATIENT
  Age: 64 Year
  Sex: Female
  Weight: 74.8435 kg

DRUGS (1)
  1. CYMBALTA [Suspect]
     Indication: FIBROMYALGIA
     Dates: start: 20090901, end: 20091201

REACTIONS (14)
  - ABNORMAL DREAMS [None]
  - ACTIVITIES OF DAILY LIVING IMPAIRED [None]
  - BLOOD GLUCOSE INCREASED [None]
  - DRUG WITHDRAWAL SYNDROME [None]
  - DYSPEPSIA [None]
  - HEADACHE [None]
  - INSOMNIA [None]
  - MUSCLE TWITCHING [None]
  - NIGHTMARE [None]
  - OEDEMA PERIPHERAL [None]
  - PAIN [None]
  - POOR QUALITY SLEEP [None]
  - TREMOR [None]
  - WEIGHT INCREASED [None]
